FAERS Safety Report 23102723 (Version 1)
Quarter: 2023Q4

REPORT INFORMATION
  Report Type: Spontaneous
  Country: US (occurrence: US)
  Receive Date: 20231025
  Receipt Date: 20231025
  Transmission Date: 20240109
  Serious: No
  Sender: FDA-Public Use
  Company Number: US-PHARMING-PHAUS2023000783

PATIENT

DRUGS (1)
  1. RUCONEST [Suspect]
     Active Substance: HUMAN C1-ESTERASE INHIBITOR
     Indication: Hereditary angioedema
     Dosage: 2925 IU, AS NEEDED
     Route: 042
     Dates: start: 202302

REACTIONS (2)
  - Rhinovirus infection [Unknown]
  - Cystitis [Unknown]
